FAERS Safety Report 16756162 (Version 1)
Quarter: 2019Q3

REPORT INFORMATION
  Report Type: Spontaneous
  Country: GB (occurrence: GB)
  Receive Date: 20190829
  Receipt Date: 20190829
  Transmission Date: 20191005
  Serious: Yes (Hospitalization, Disabling)
  Sender: FDA-Public Use
  Company Number: GB-TEVA-2019-GB-1097971

PATIENT
  Age: 84 Year
  Sex: Female
  Weight: 49.5 kg

DRUGS (9)
  1. PREGABALIN. [Concomitant]
     Active Substance: PREGABALIN
  2. RELVAR ELLIPTA [Concomitant]
     Active Substance: FLUTICASONE FUROATE\VILANTEROL TRIFENATATE
  3. RAMIPRIL. [Suspect]
     Active Substance: RAMIPRIL
     Indication: ESSENTIAL HYPERTENSION
     Dosage: 2.5 MG
     Route: 048
     Dates: end: 20190531
  4. PARACETAMOL [Concomitant]
     Active Substance: ACETAMINOPHEN
  5. ACCRETE D3 [Concomitant]
     Active Substance: CALCIUM CARBONATE\CHOLECALCIFEROL
  6. CLOPIDOGREL [Concomitant]
     Active Substance: CLOPIDOGREL BISULFATE
  7. RIVASTIGMINE. [Concomitant]
     Active Substance: RIVASTIGMINE
  8. ATORVASTATIN [Concomitant]
     Active Substance: ATORVASTATIN
  9. CHLORAMPHENICOL [Concomitant]
     Active Substance: CHLORAMPHENICOL

REACTIONS (6)
  - Decreased appetite [Unknown]
  - Malaise [Unknown]
  - Dehydration [Unknown]
  - Feeling abnormal [Unknown]
  - Kidney infection [Recovering/Resolving]
  - Fatigue [Unknown]

NARRATIVE: CASE EVENT DATE: 20190525
